FAERS Safety Report 6649196-1 (Version None)
Quarter: 2010Q1

REPORT INFORMATION
  Report Type: 
  Country: None (occurrence: None)
  Receive Date: 20100324
  Receipt Date: 20100315
  Transmission Date: 20100710
  Serious: Yes (Hospitalization)
  Sender: FDA-Public Use
  Company Number: B0639869A

PATIENT
  Sex: Male

DRUGS (5)
  1. DEROXAT [Suspect]
     Indication: DRUG USE FOR UNKNOWN INDICATION
     Dosage: 20MG PER DAY
     Route: 048
     Dates: end: 20100228
  2. SINTROM [Suspect]
     Indication: ATRIAL FIBRILLATION
     Route: 048
     Dates: end: 20100228
  3. CARDENSIEL [Concomitant]
     Dosage: 5MG PER DAY
     Route: 048
  4. IRBESARTAN [Concomitant]
     Dosage: 75MG PER DAY
     Route: 048
     Dates: end: 20100228
  5. ATARAX [Concomitant]
     Dosage: 25MG PER DAY
     Route: 048
     Dates: end: 20100228

REACTIONS (14)
  - ABDOMINAL DISTENSION [None]
  - DIARRHOEA [None]
  - HEPATIC HAEMORRHAGE [None]
  - HYPOTENSION [None]
  - HYPOVOLAEMIA [None]
  - HYPOVOLAEMIC SHOCK [None]
  - LIVEDO RETICULARIS [None]
  - LOSS OF CONSCIOUSNESS [None]
  - MALAISE [None]
  - MUSCULOSKELETAL PAIN [None]
  - PALLOR [None]
  - PERITONEAL DISORDER [None]
  - PERITONEAL HAEMORRHAGE [None]
  - TACHYCARDIA [None]
